FAERS Safety Report 22325027 (Version 2)
Quarter: 2024Q1

REPORT INFORMATION
  Report Type: Spontaneous
  Country: CL (occurrence: CL)
  Receive Date: 20230516
  Receipt Date: 20240315
  Transmission Date: 20240410
  Serious: Yes (Other)
  Sender: FDA-Public Use
  Company Number: CL-PFIZER INC-PV202300086454

PATIENT
  Age: 58 Year
  Sex: Male

DRUGS (1)
  1. LORBRENA [Suspect]
     Active Substance: LORLATINIB
     Indication: Lung cancer metastatic
     Dosage: 100 MG, DAILY
     Route: 048

REACTIONS (2)
  - Osteoarthritis [Unknown]
  - Tooth loss [Unknown]

NARRATIVE: CASE EVENT DATE: 20230101
